FAERS Safety Report 17032199 (Version 1)
Quarter: 2019Q4

REPORT INFORMATION
  Report Type: Spontaneous
  Country: GB (occurrence: GB)
  Receive Date: 20191114
  Receipt Date: 20191114
  Transmission Date: 20200122
  Serious: Yes (Disabling, Other)
  Sender: FDA-Public Use
  Company Number: GB-PFIZER INC-2019493017

PATIENT
  Age: 49 Year
  Sex: Male
  Weight: 89.98 kg

DRUGS (4)
  1. PROPANOLOL HCL [Suspect]
     Active Substance: PROPRANOLOL HYDROCHLORIDE
     Indication: ANXIETY
     Dosage: 1-3 DF, DAILY
     Route: 048
     Dates: start: 20190530, end: 20190620
  2. HALOPERIDOL. [Interacting]
     Active Substance: HALOPERIDOL
     Dosage: UNK
     Dates: start: 20190510, end: 20190514
  3. FLUOXETINE HYDROCHLORIDE. [Interacting]
     Active Substance: FLUOXETINE HYDROCHLORIDE
     Dosage: 60 MG, DAILY
     Route: 048
  4. FLUOXETINE HYDROCHLORIDE. [Interacting]
     Active Substance: FLUOXETINE HYDROCHLORIDE
     Indication: OBSESSIVE-COMPULSIVE DISORDER
     Dosage: 20 MG, DAILY
     Route: 048

REACTIONS (8)
  - Vitreous floaters [Recovered/Resolved]
  - Cataract [Unknown]
  - Ear discomfort [Unknown]
  - Vision blurred [Not Recovered/Not Resolved]
  - Lacrimation increased [Recovered/Resolved]
  - Drug interaction [Unknown]
  - Medication error [Unknown]
  - Tinnitus [Not Recovered/Not Resolved]

NARRATIVE: CASE EVENT DATE: 20190602
